FAERS Safety Report 6461116-1 (Version None)
Quarter: 2009Q4

REPORT INFORMATION
  Report Type: 
  Country: None (occurrence: None)
  Receive Date: 20091130
  Receipt Date: 20091116
  Transmission Date: 20100525
  Serious: Yes (Hospitalization)
  Sender: FDA-Public Use
  Company Number: D0060211A

PATIENT
  Age: 60 Year
  Sex: Male

DRUGS (11)
  1. LAMICTAL [Suspect]
     Indication: ANALGESIC THERAPY
     Dosage: 25MG TWICE PER DAY
     Route: 048
     Dates: start: 20080710, end: 20080726
  2. SIRDALUD [Concomitant]
     Dosage: 6MG FIVE TIMES PER DAY
     Route: 048
  3. ATACAND [Concomitant]
     Indication: HYPERTENSION
     Dosage: 8MG TWICE PER DAY
     Route: 048
  4. MAGNESIUM [Concomitant]
     Dosage: 240MG PER DAY
     Route: 048
  5. GABAPENTIN [Concomitant]
     Indication: ANALGESIC THERAPY
     Dosage: 300MG THREE TIMES PER DAY
     Route: 048
  6. SIOFOR [Concomitant]
     Dosage: 850MG PER DAY
     Route: 048
  7. VITAMIN B-12 [Concomitant]
     Dosage: 10MCG PER DAY
     Route: 048
     Dates: start: 20080701
  8. BACLOFEN [Concomitant]
     Dosage: 25MG FIVE TIMES PER DAY
     Route: 048
  9. TARGIN [Concomitant]
     Indication: ANALGESIC THERAPY
     Dosage: 10MG TWICE PER DAY
     Route: 048
  10. MIRTAZAPINE [Concomitant]
     Indication: ANALGESIC THERAPY
     Route: 065
     Dates: start: 20080629, end: 20080715
  11. NOVALGIN [Concomitant]
     Indication: ANALGESIC THERAPY
     Route: 065
     Dates: start: 20080629, end: 20080715

REACTIONS (6)
  - CARDIOVASCULAR DISORDER [None]
  - DRUG ERUPTION [None]
  - FATIGUE [None]
  - LOSS OF CONSCIOUSNESS [None]
  - PULSE ABSENT [None]
  - RESUSCITATION [None]
